FAERS Safety Report 7297482-7 (Version None)
Quarter: 2011Q1

REPORT INFORMATION
  Report Type: 
  Country: None (occurrence: None)
  Receive Date: 20110216
  Receipt Date: 20110207
  Transmission Date: 20110831
  Serious: Yes (Disabling, Other)
  Sender: FDA-Public Use
  Company Number: US-ELI_LILLY_AND_COMPANY-US200910003656

PATIENT
  Sex: Female

DRUGS (5)
  1. HUMULIN 70/30 [Suspect]
     Dosage: 18 U, EACH MORNING
  2. HUMULIN 70/30 [Suspect]
     Dosage: 12 U, EACH EVENING
  3. HUMALOG [Suspect]
  4. HUMULIN 70/30 [Suspect]
     Indication: DIABETES MELLITUS
     Dosage: 15 U, 2/D
     Dates: start: 20030101
  5. HUMULIN 70/30 [Suspect]
     Dosage: UNK, UNK

REACTIONS (15)
  - DRUG INEFFECTIVE [None]
  - ANGER [None]
  - LOCALISED INFECTION [None]
  - TONGUE OEDEMA [None]
  - PRODUCT TAMPERING [None]
  - MALAISE [None]
  - ABASIA [None]
  - BLOOD GLUCOSE INCREASED [None]
  - NAUSEA [None]
  - BLINDNESS TRANSIENT [None]
  - VISION BLURRED [None]
  - ABDOMINAL DISCOMFORT [None]
  - PAIN [None]
  - SUDDEN ONSET OF SLEEP [None]
  - DRUG EFFECT DECREASED [None]
